FAERS Safety Report 7204039-2 (Version None)
Quarter: 2010Q4

REPORT INFORMATION
  Report Type: 
  Country: None (occurrence: None)
  Receive Date: 20101220
  Receipt Date: 20101210
  Transmission Date: 20110411
  Serious: Yes (Hospitalization)
  Sender: FDA-Public Use
  Company Number: TPA2010A06245

PATIENT
  Age: 75 Year
  Sex: Male

DRUGS (5)
  1. ADENURIC (FEBUXOSTAT) [Suspect]
     Indication: HYPERURICAEMIA
     Dosage: 80 MG (80 MG, 1 IN1 D)
     Route: 048
     Dates: start: 20101116, end: 20101202
  2. AVELOX [Suspect]
     Dosage: 400 MG (400 MG, 1 IN1 D)
     Dates: start: 20101120, end: 20101201
  3. MARCUMAR [Suspect]
  4. RAMIPRIL [Concomitant]
  5. TORSEMIDE [Concomitant]

REACTIONS (1)
  - LEUKOCYTOCLASTIC VASCULITIS [None]
